FAERS Safety Report 10868392 (Version 1)
Quarter: 2015Q1

REPORT INFORMATION
  Report Type: Spontaneous
  Country: IT (occurrence: IT)
  Receive Date: 20150225
  Receipt Date: 20150225
  Transmission Date: 20150721
  Serious: Yes (Hospitalization, Other)
  Sender: FDA-Public Use
  Company Number: IT-BAXTER-2015BAX008735

PATIENT
  Age: 36 Year
  Sex: Female

DRUGS (4)
  1. WARFARIN [Suspect]
     Active Substance: WARFARIN
     Indication: HEPATIC VEIN THROMBOSIS
     Route: 048
  2. WARFARIN [Suspect]
     Active Substance: WARFARIN
     Indication: PULMONARY EMBOLISM
  3. GAMMAGARD [Suspect]
     Active Substance: HUMAN IMMUNOGLOBULIN G
     Indication: IMMUNE THROMBOCYTOPENIC PURPURA
     Route: 042
     Dates: start: 2004
  4. CYCLOSPORIN A [Suspect]
     Active Substance: CYCLOSPORINE
     Indication: IMMUNE THROMBOCYTOPENIC PURPURA
     Route: 042

REACTIONS (10)
  - Hepatic vein thrombosis [Recovered/Resolved]
  - Somnolence [Unknown]
  - Pulmonary embolism [Unknown]
  - Paroxysmal nocturnal haemoglobinuria [Unknown]
  - Headache [Unknown]
  - Exposure during pregnancy [Recovered/Resolved]
  - Aphasia [Unknown]
  - Postpartum haemorrhage [Recovered/Resolved]
  - Hypercoagulation [Unknown]
  - Drug ineffective [Not Recovered/Not Resolved]
